FAERS Safety Report 9495557 (Version 1)
Quarter: 2013Q3

REPORT INFORMATION
  Report Type: Spontaneous
  Country: ES (occurrence: ES)
  Receive Date: 20130903
  Receipt Date: 20130903
  Transmission Date: 20140515
  Serious: Yes (Hospitalization)
  Sender: FDA-Public Use
  Company Number: ES-BAYER-2013-104702

PATIENT
  Age: 80 Year
  Sex: Female

DRUGS (3)
  1. ADIRO 100 [Suspect]
     Indication: SELF-MEDICATION
     Dosage: 100 MG, QD
     Route: 048
     Dates: start: 20121113, end: 20130121
  2. ADIRO 100 [Suspect]
     Indication: PALPITATIONS
  3. ENALAPRIL [Concomitant]
     Indication: HYPERTENSION
     Dosage: 10 MG, QD
     Route: 048
     Dates: start: 201208

REACTIONS (3)
  - Gastrointestinal haemorrhage [Recovered/Resolved]
  - Haemorrhagic anaemia [Recovered/Resolved]
  - Angina pectoris [Recovered/Resolved]
